FAERS Safety Report 8901408 (Version 1)
Quarter: 2012Q4

REPORT INFORMATION
  Report Type: 
  Country: FR (occurrence: FR)
  Receive Date: 20121109
  Receipt Date: 20121109
  Transmission Date: 20130627
  Serious: Yes (Other)
  Sender: FDA-Public Use
  Company Number: FR-JNJFOC-20121010004

PATIENT
  Age: 87 Year
  Sex: Male

DRUGS (4)
  1. XARELTO [Suspect]
     Indication: PRODUCT USED FOR UNKNOWN INDICATION
     Route: 065
     Dates: start: 20120905, end: 20120924
  2. SECTRAL [Concomitant]
     Dates: start: 20120319, end: 20121020
  3. ENALAPRIL [Concomitant]
     Dates: start: 20100325, end: 20121020
  4. LASILIX [Concomitant]
     Dates: start: 20120924, end: 20121020

REACTIONS (3)
  - Gamma-glutamyltransferase increased [Recovering/Resolving]
  - Transaminases increased [Recovering/Resolving]
  - Drug-induced liver injury [Not Recovered/Not Resolved]
